FAERS Safety Report 11200088 (Version 1)
Quarter: 2015Q2

REPORT INFORMATION
  Report Type: Other
  Country: JP (occurrence: JP)
  Receive Date: 20150618
  Receipt Date: 20150618
  Transmission Date: 20150821
  Serious: Yes (Other)
  Sender: FDA-Public Use
  Company Number: JP-GUERBET LLC-20150093

PATIENT
  Age: 77 Year
  Sex: Male

DRUGS (2)
  1. LIPIODOL [Suspect]
     Active Substance: ETHIODIZED OIL
     Indication: THERAPEUTIC EMBOLISATION
  2. HISTOACRYL(N-BUTYL-2-CYANOACR-YLATE)(N-BUTYL-2-CYANOACRYLAT-E) [Concomitant]
     Dates: start: 20121001, end: 20121001

REACTIONS (2)
  - Splenic abscess [Recovering/Resolving]
  - Splenic infarction [Not Recovered/Not Resolved]
